FAERS Safety Report 7597258-7 (Version None)
Quarter: 2011Q3

REPORT INFORMATION
  Report Type: 
  Country: None (occurrence: None)
  Receive Date: 20110708
  Receipt Date: 20110110
  Transmission Date: 20111222
  Serious: No
  Sender: FDA-Public Use
  Company Number: US-GLAXOSMITHKLINE-A0904956A

PATIENT
  Sex: Female

DRUGS (4)
  1. FLOVENT [Suspect]
     Indication: ASTHMA
     Dosage: 1PUFF AS REQUIRED
     Route: 055
     Dates: start: 19960101
  2. ALBUTEROL SULFATE AUTOHALER [Concomitant]
  3. OXYGEN THERAPY [Concomitant]
  4. IPRATROPIUM BROMIDE [Concomitant]

REACTIONS (3)
  - VISUAL IMPAIRMENT [None]
  - THERAPEUTIC RESPONSE UNEXPECTED [None]
  - EXPIRED DRUG ADMINISTERED [None]
